FAERS Safety Report 24143580 (Version 1)
Quarter: 2024Q3

REPORT INFORMATION
  Report Type: Spontaneous
  Country: PL (occurrence: PL)
  Receive Date: 20240727
  Receipt Date: 20240727
  Transmission Date: 20241017
  Serious: Yes (Hospitalization, Other)
  Sender: NEXUS PHARMACEUTICALS
  Company Number: PL-Nexus Pharma-000293

PATIENT
  Age: 22 Year
  Sex: Male

DRUGS (8)
  1. COLISTIMETHATE SODIUM [Suspect]
     Active Substance: COLISTIMETHATE SODIUM
     Indication: CNS ventriculitis
     Dosage: 3 MILLION UNITS IV DAILY
     Route: 042
     Dates: start: 20230906
  2. COLISTIN [Suspect]
     Active Substance: COLISTIN
     Indication: CNS ventriculitis
     Dates: start: 20231013, end: 20231027
  3. MEROPENEM [Concomitant]
     Active Substance: MEROPENEM
     Indication: Antibiotic therapy
     Dosage: 3X2G IV
     Route: 042
     Dates: start: 202309, end: 2023
  4. VANCOMYCIN [Concomitant]
     Active Substance: VANCOMYCIN
     Indication: Antibiotic therapy
     Dosage: 2X1G IV.
     Route: 042
     Dates: start: 202309, end: 20230906
  5. SODIUM CHLORIDE [Concomitant]
     Active Substance: SODIUM CHLORIDE
     Dosage: 1 MILLION UNITS (ONE-THIRD AMPULE) DISSOLVED IN 2 ML NACL 0.9%
  6. LINEZOLID [Concomitant]
     Active Substance: LINEZOLID
     Indication: Antibiotic therapy
     Dates: start: 20230906
  7. VANCOMYCIN [Concomitant]
     Active Substance: VANCOMYCIN
     Indication: Antibiotic therapy
     Dosage: 2X1G IV.
     Route: 042
     Dates: start: 20231007, end: 20231010
  8. MEROPENEM [Concomitant]
     Active Substance: MEROPENEM
     Indication: Antibiotic therapy
     Dosage: 3X2G IV
     Route: 042
     Dates: start: 20231013

REACTIONS (1)
  - Myoclonic epilepsy [Unknown]
